FAERS Safety Report 8142655-4 (Version None)
Quarter: 2012Q1

REPORT INFORMATION
  Report Type: 
  Country: None (occurrence: None)
  Receive Date: 20120216
  Receipt Date: 20120202
  Transmission Date: 20120608
  Serious: Yes (Hospitalization, Other)
  Sender: FDA-Public Use
  Company Number: BE-CELGENEUS-013-21880-10040106

PATIENT
  Sex: Female
  Weight: 63.2 kg

DRUGS (5)
  1. EFFEXOR [Concomitant]
     Indication: ANTIDEPRESSANT THERAPY
     Dosage: 75 MILLIGRAM
     Route: 065
     Dates: start: 20100216
  2. ZOLPIDEM [Concomitant]
     Indication: INSOMNIA
     Dosage: 5 MILLIGRAM
     Route: 065
     Dates: start: 20090615
  3. REVLIMID [Suspect]
     Indication: T-CELL LYMPHOMA
     Dosage: 25 MILLIGRAM
     Route: 048
     Dates: start: 20100319, end: 20100325
  4. TRAMADOL HCL [Concomitant]
     Indication: PAIN
     Route: 065
     Dates: start: 20100319
  5. ZOLPIDEM TARTRATE [Concomitant]
     Indication: INSOMNIA
     Dosage: .5 TABLET
     Route: 048
     Dates: start: 20090615

REACTIONS (2)
  - DISEASE PROGRESSION [None]
  - ACUTE FEBRILE NEUTROPHILIC DERMATOSIS [None]
